FAERS Safety Report 22295231 (Version 1)
Quarter: 2023Q2

REPORT INFORMATION
  Report Type: Spontaneous
  Country: FR (occurrence: FR)
  Receive Date: 20230508
  Receipt Date: 20230508
  Transmission Date: 20230722
  Serious: Yes (Life-Threatening, Other)
  Sender: FDA-Public Use
  Company Number: FR-MYLANLABS-2018M1086026

PATIENT
  Age: 45 Year
  Sex: Female

DRUGS (6)
  1. MOXIFLOXACIN [Suspect]
     Active Substance: MOXIFLOXACIN
     Indication: Interstitial lung disease
     Dosage: UNK
     Route: 065
  2. MOXIFLOXACIN [Suspect]
     Active Substance: MOXIFLOXACIN
     Indication: Pneumonia pneumococcal
  3. MOXIFLOXACIN [Suspect]
     Active Substance: MOXIFLOXACIN
     Indication: Pneumonia
  4. MOXIFLOXACIN [Suspect]
     Active Substance: MOXIFLOXACIN
     Indication: Pneumococcal infection
  5. PENICILLIN [Concomitant]
     Active Substance: PENICILLIN
     Indication: Pneumonia pneumococcal
     Dosage: UNK
     Route: 065
  6. PENICILLIN [Concomitant]
     Active Substance: PENICILLIN
     Dosage: 6 MILLIGRAM  (DOSE CUMULATED)
     Route: 065

REACTIONS (15)
  - Anaphylactic shock [Unknown]
  - Anaphylactic reaction [Unknown]
  - Bronchospasm [Unknown]
  - Respiratory disorder [Recovered/Resolved]
  - Urticaria [Unknown]
  - Cough [Recovered/Resolved]
  - Dyspnoea [Recovered/Resolved]
  - Cytopenia [Unknown]
  - Angioedema [Unknown]
  - Hepatitis [Unknown]
  - Eosinophilia [Unknown]
  - Serum sickness [Unknown]
  - Pyrexia [Unknown]
  - Renal disorder [Unknown]
  - Vasculitis [Unknown]
